FAERS Safety Report 8497507-7 (Version None)
Quarter: 2012Q3

REPORT INFORMATION
  Report Type: 
  Country: None (occurrence: None)
  Receive Date: 20120709
  Receipt Date: 20120612
  Transmission Date: 20120928
  Serious: No
  Sender: FDA-Public Use
  Company Number: US-AMGEN-USASP2012036930

PATIENT
  Age: 57 Year
  Sex: Female

DRUGS (2)
  1. FORTEO [Concomitant]
     Dosage: 1 MUG, UNK
  2. ENBREL [Suspect]
     Indication: PSORIATIC ARTHROPATHY
     Dosage: 50 MG, UNK

REACTIONS (1)
  - TOOTH ABSCESS [None]
